FAERS Safety Report 9464198 (Version 2)
Quarter: 2013Q3

REPORT INFORMATION
  Report Type: Spontaneous
  Country: DE (occurrence: DE)
  Receive Date: 20130819
  Receipt Date: 20130819
  Transmission Date: 20140515
  Serious: Yes (Life-Threatening, Hospitalization, Disabling, Other)
  Sender: FDA-Public Use
  Company Number: DE-JNJFOC-20130616665

PATIENT
  Age: 73 Year
  Sex: Female

DRUGS (7)
  1. XARELTO [Suspect]
     Indication: PRODUCT USED FOR UNKNOWN INDICATION
     Route: 048
     Dates: start: 201212
  2. DIOVAN [Concomitant]
     Route: 065
  3. BELOC-ZOK [Concomitant]
     Route: 065
  4. AMLODIPINE [Concomitant]
     Route: 065
  5. MOXONIDIN [Concomitant]
     Route: 065
  6. PANTOZOL [Concomitant]
     Route: 065
  7. CLEXANE [Concomitant]
     Route: 065

REACTIONS (4)
  - Cerebellar haemorrhage [Unknown]
  - Renal infarct [Unknown]
  - Endocarditis [Unknown]
  - Cardiac valve vegetation [Unknown]
